FAERS Safety Report 10670739 (Version 1)
Quarter: 2014Q4

REPORT INFORMATION
  Report Type: Spontaneous
  Country: US (occurrence: None)
  Receive Date: 20141219
  Receipt Date: 20141219
  Transmission Date: 20150529
  Serious: Yes (Life-Threatening)
  Sender: FDA-Public Use
  Company Number: 14-090

PATIENT
  Sex: Female

DRUGS (3)
  1. COUMADIN [Concomitant]
     Active Substance: WARFARIN SODIUM
  2. HOMEOPATHICS [Suspect]
     Active Substance: HOMEOPATHICS
  3. ARNICARE [Suspect]
     Active Substance: ARNICA MONTANA
     Indication: CONTUSION
     Dosage: 1 TOPICAL APPLICATION
     Dates: start: 20141003

REACTIONS (10)
  - Contusion [None]
  - Cardiac arrest [None]
  - Fall [None]
  - Seizure [None]
  - Speech disorder [None]
  - Splenic injury [None]
  - VIIth nerve paralysis [None]
  - Head injury [None]
  - Haemorrhage [None]
  - Transient ischaemic attack [None]

NARRATIVE: CASE EVENT DATE: 20141003
